FAERS Safety Report 7497588-3 (Version None)
Quarter: 2011Q2

REPORT INFORMATION
  Report Type: 
  Country: None (occurrence: None)
  Receive Date: 20110523
  Receipt Date: 20110509
  Transmission Date: 20111010
  Serious: Yes (Death, Hospitalization)
  Sender: FDA-Public Use
  Company Number: JP-JNJFOC-20100908417

PATIENT
  Sex: Female
  Weight: 40 kg

DRUGS (18)
  1. RABEPRAZOLE SODIUM [Concomitant]
     Indication: REFLUX OESOPHAGITIS
     Route: 048
  2. LUPRAC [Concomitant]
     Indication: ATRIAL FIBRILLATION
     Route: 048
  3. REMICADE [Suspect]
     Route: 042
     Dates: start: 20050309
  4. ESTAZOLAM [Concomitant]
     Indication: INSOMNIA
     Route: 048
  5. REMICADE [Suspect]
     Dosage: TOTAL 35 INFUSIONS
     Route: 042
     Dates: start: 20100625
  6. METHYCOBAL [Concomitant]
     Indication: NEUROPATHY PERIPHERAL
     Route: 048
  7. ALDACTONE [Concomitant]
     Indication: ATRIAL FIBRILLATION
     Route: 048
  8. RHEUMATREX [Suspect]
     Indication: RHEUMATOID ARTHRITIS
     Route: 048
     Dates: start: 20030508, end: 20100823
  9. WARFARIN SODIUM [Concomitant]
     Indication: ATRIAL FIBRILLATION
     Route: 048
  10. GLUCOSE [Concomitant]
     Indication: HYPERKALAEMIA
     Dates: start: 20101007, end: 20101007
  11. PREDNISOLONE [Concomitant]
     Indication: RHEUMATOID ARTHRITIS
     Route: 048
  12. TIENAM [Concomitant]
     Dates: start: 20101007, end: 20101007
  13. CALCICOL [Concomitant]
     Indication: HYPERKALAEMIA
     Dates: start: 20101007, end: 20101007
  14. HUMULIN R [Concomitant]
     Indication: HYPERKALAEMIA
     Dosage: 5 UNITS DAILY
     Dates: start: 20101007, end: 20101007
  15. REMICADE [Suspect]
     Indication: RHEUMATOID ARTHRITIS
     Dosage: 33 DOSES UNSPECIFIED DATES
     Route: 042
     Dates: start: 20050830
  16. FOLIC ACID [Concomitant]
     Indication: RHEUMATOID ARTHRITIS
     Route: 048
     Dates: start: 20030703, end: 20100823
  17. SULFAMETHOXAZOLE [Concomitant]
     Indication: INFECTION PROPHYLAXIS
     Route: 048
     Dates: start: 20070608
  18. BUFFERIN [Concomitant]
     Indication: ATRIAL FIBRILLATION
     Route: 048

REACTIONS (5)
  - HEPATITIS B [None]
  - HEPATIC FAILURE [None]
  - CARDIO-RESPIRATORY ARREST [None]
  - INFECTION [None]
  - HYPERKALAEMIA [None]
